FAERS Safety Report 16964266 (Version 1)
Quarter: 2019Q4

REPORT INFORMATION
  Report Type: Spontaneous
  Country: US (occurrence: US)
  Receive Date: 20191025
  Receipt Date: 20191025
  Transmission Date: 20200122
  Serious: No
  Sender: FDA-Public Use
  Company Number: None

PATIENT
  Age: 56 Year
  Sex: Female
  Weight: 67.5 kg

DRUGS (9)
  1. BUPROPION. [Concomitant]
     Active Substance: BUPROPION
  2. NAPROXEN. [Concomitant]
     Active Substance: NAPROXEN
  3. NUEDEXTA [Suspect]
     Active Substance: DEXTROMETHORPHAN HYDROBROMIDE\QUINIDINE SULFATE
     Indication: AFFECT LABILITY
     Dosage: ?          QUANTITY:1 CAPSULE(S);?
     Route: 048
  4. LISINOPRIL. [Concomitant]
     Active Substance: LISINOPRIL
  5. LORATIDINE [Concomitant]
     Active Substance: LORATADINE
  6. METHYPHENIDATE [Concomitant]
     Active Substance: METHYLPHENIDATE
  7. NEURONTIN [Concomitant]
     Active Substance: GABAPENTIN
  8. SIMETHICONE (DIMETHICONE) [Concomitant]
     Active Substance: DIMETHICONE
  9. VITAMIN D3 [Concomitant]
     Active Substance: CHOLECALCIFEROL

REACTIONS (3)
  - Thinking abnormal [None]
  - Balance disorder [None]
  - Loss of proprioception [None]

NARRATIVE: CASE EVENT DATE: 20191011
